FAERS Safety Report 18051107 (Version 1)
Quarter: 2020Q3

REPORT INFORMATION
  Report Type: Spontaneous
  Country: US (occurrence: US)
  Receive Date: 20200721
  Receipt Date: 20200721
  Transmission Date: 20201103
  Serious: No
  Sender: FDA-Public Use
  Company Number: US-BAYER-2020-145902

PATIENT
  Age: 71 Year
  Sex: Female

DRUGS (1)
  1. MENOSTAR [Suspect]
     Active Substance: ESTRADIOL
     Indication: AUTOIMMUNE DISORDER
     Dosage: UNK
     Route: 062

REACTIONS (2)
  - Product adhesion issue [None]
  - Product use in unapproved indication [None]

NARRATIVE: CASE EVENT DATE: 20200714
